FAERS Safety Report 6048301-8 (Version None)
Quarter: 2009Q1

REPORT INFORMATION
  Report Type: 
  Country: None (occurrence: None)
  Receive Date: 20090123
  Receipt Date: 20090112
  Transmission Date: 20090719
  Serious: Yes (Other)
  Sender: FDA-Public Use
  Company Number: BR-ROCHE-608022

PATIENT
  Sex: Male
  Weight: 76 kg

DRUGS (1)
  1. RIVOTRIL [Suspect]
     Indication: BIPOLAR DISORDER
     Dosage: OTHER INDICATION: ANXIETY, STRENGTH: 2.5 MG/ ML
     Route: 048
     Dates: start: 20070101

REACTIONS (11)
  - ALANINE AMINOTRANSFERASE INCREASED [None]
  - AMNESIA [None]
  - CHEST PAIN [None]
  - DIZZINESS [None]
  - ELECTROCARDIOGRAM ABNORMAL [None]
  - EPISTAXIS [None]
  - FATIGUE [None]
  - GAMMA-GLUTAMYLTRANSFERASE INCREASED [None]
  - HEPATITIS C [None]
  - HYPERTENSION [None]
  - PALPITATIONS [None]
